FAERS Safety Report 14655692 (Version 1)
Quarter: 2018Q1

REPORT INFORMATION
  Report Type: Spontaneous
  Country: US (occurrence: US)
  Receive Date: 20180319
  Receipt Date: 20180319
  Transmission Date: 20180509
  Serious: No
  Sender: FDA-Public Use
  Company Number: US-PFIZER INC-2018107934

PATIENT
  Age: 44 Year
  Sex: Female

DRUGS (2)
  1. GENOTROPIN [Concomitant]
     Active Substance: SOMATROPIN
     Indication: POSTPARTUM HYPOPITUITARISM
     Dosage: 0.4 MG, DAILY
     Route: 058
  2. LEVOTHYROXINE SODIUM. [Suspect]
     Active Substance: LEVOTHYROXINE SODIUM
     Indication: HYPOPITUITARISM
     Dosage: 125 UG, DAILY
     Dates: start: 199708

REACTIONS (2)
  - Product use in unapproved indication [Unknown]
  - Weight decreased [Unknown]

NARRATIVE: CASE EVENT DATE: 199708
